FAERS Safety Report 12655609 (Version 1)
Quarter: 2016Q3

REPORT INFORMATION
  Report Type: Spontaneous
  Country: US (occurrence: US)
  Receive Date: 20160816
  Receipt Date: 20160816
  Transmission Date: 20161109
  Serious: Yes (Hospitalization)
  Sender: FDA-Public Use
  Company Number: PHHY2016US111702

PATIENT
  Age: 64 Year
  Sex: Male

DRUGS (1)
  1. VANCOMYCIN [Suspect]
     Active Substance: VANCOMYCIN
     Indication: INFECTION
     Dosage: 1 G, Q8H
     Route: 042

REACTIONS (2)
  - Nephropathy toxic [Recovering/Resolving]
  - Renal tubular necrosis [Recovering/Resolving]
